FAERS Safety Report 21259879 (Version 1)
Quarter: 2022Q3

REPORT INFORMATION
  Report Type: Spontaneous
  Country: US (occurrence: None)
  Receive Date: 20220825
  Receipt Date: 20220825
  Transmission Date: 20221027
  Serious: Yes (Hospitalization)
  Sender: FDA-Public Use
  Company Number: None

PATIENT
  Sex: Male

DRUGS (1)
  1. CINACALCET HYDROCHLORIDE [Suspect]
     Active Substance: CINACALCET HYDROCHLORIDE
     Indication: Nephritic syndrome
     Dosage: 30MG ONCE DAILY ORAL
     Route: 048
     Dates: start: 202006

REACTIONS (3)
  - Dehydration [None]
  - Renal disorder [None]
  - Kidney infection [None]
